FAERS Safety Report 4615137-1 (Version None)
Quarter: 2005Q1

REPORT INFORMATION
  Report Type: 
  Country: None (occurrence: None)
  Receive Date: 20050322
  Receipt Date: 20050315
  Transmission Date: 20050727
  Serious: Yes (Other)
  Sender: FDA-Public Use
  Company Number: US-GLAXOSMITHKLINE-A0549870A

PATIENT
  Sex: Female

DRUGS (2)
  1. PAXIL CR [Suspect]
     Dosage: 25MG PER DAY
     Route: 048
     Dates: start: 19990101
  2. NO CONCURRENT MEDICATION [Concomitant]

REACTIONS (1)
  - SUICIDAL IDEATION [None]
